FAERS Safety Report 9893045 (Version 1)
Quarter: 2014Q1

REPORT INFORMATION
  Report Type: Report from Study
  Country: US (occurrence: US)
  Receive Date: 20140213
  Receipt Date: 20140213
  Transmission Date: 20141002
  Serious: Yes (Death)
  Sender: FDA-Public Use
  Company Number: US-ROCHE-1322321

PATIENT
  Age: 48 Year
  Sex: Female
  Weight: 54.48 kg

DRUGS (13)
  1. AVASTIN [Suspect]
     Indication: COLON CANCER
     Route: 042
     Dates: start: 20091120
  2. AVASTIN [Suspect]
     Indication: METASTASES TO LIVER
  3. XELODA [Suspect]
     Indication: COLON CANCER
     Dosage: PO FOR 14 DAYS STARTING ON THE EVENING OF DAY 1
     Route: 048
     Dates: start: 20100609
  4. XELODA [Suspect]
     Indication: METASTASES TO LIVER
     Route: 065
     Dates: start: 20090925, end: 20091204
  5. XELODA [Suspect]
     Dosage: PO FOR 14 DAYS STARTING ON THE EVENING OF DAY 1
     Route: 048
     Dates: start: 20091007
  6. OXALIPLATIN [Concomitant]
     Indication: COLON CANCER
     Route: 042
     Dates: start: 20100609, end: 20100712
  7. OXALIPLATIN [Concomitant]
     Route: 065
     Dates: start: 20090925, end: 20091204
  8. EMEND [Concomitant]
     Route: 042
  9. EMEND [Concomitant]
     Route: 048
  10. ALOXI [Concomitant]
     Route: 065
  11. DECADRON [Concomitant]
     Route: 065
  12. CALCIUM GLUCONATE [Concomitant]
     Route: 065
  13. MAGNESIUM SULFATE [Concomitant]
     Route: 065

REACTIONS (9)
  - Death [Fatal]
  - Neutropenia [Unknown]
  - Dehydration [Unknown]
  - Nausea [Unknown]
  - Fatigue [Unknown]
  - Protein total [Unknown]
  - Neuropathy peripheral [Unknown]
  - Vomiting [Unknown]
  - Rectal haemorrhage [Unknown]
